FAERS Safety Report 11299495 (Version 1)
Quarter: 2015Q3

REPORT INFORMATION
  Report Type: Spontaneous
  Country: US (occurrence: US)
  Receive Date: 20150722
  Receipt Date: 20150722
  Transmission Date: 20151125
  Serious: No
  Sender: FDA-Public Use
  Company Number: US-ELI_LILLY_AND_COMPANY-US201212001291

PATIENT
  Sex: Female
  Weight: 88.44 kg

DRUGS (11)
  1. ALLOPURINOL. [Concomitant]
     Active Substance: ALLOPURINOL
  2. CRESTOR [Concomitant]
     Active Substance: ROSUVASTATIN CALCIUM
  3. FISH OIL [Concomitant]
     Active Substance: FISH OIL
  4. ISOSORBIDE MONONITRATE. [Concomitant]
     Active Substance: ISOSORBIDE MONONITRATE
  5. ZETIA [Concomitant]
     Active Substance: EZETIMIBE
  6. CHOLECALCIFEROL [Concomitant]
     Active Substance: CHOLECALCIFEROL
  7. NEXIUM [Concomitant]
     Active Substance: ESOMEPRAZOLE MAGNESIUM
  8. EFFIENT [Suspect]
     Active Substance: PRASUGREL HYDROCHLORIDE
     Indication: MYOCARDIAL INFARCTION
     Dosage: 10 MG, UNKNOWN
     Dates: start: 20121019
  9. AMLODIPINE [Concomitant]
     Active Substance: AMLODIPINE BESYLATE
  10. LEVOTHYROXINE. [Concomitant]
     Active Substance: LEVOTHYROXINE
  11. ASPIRIN. [Concomitant]
     Active Substance: ASPIRIN

REACTIONS (4)
  - Lip dry [Unknown]
  - Lip exfoliation [Unknown]
  - Visual acuity reduced [Unknown]
  - Lip haemorrhage [Unknown]
